FAERS Safety Report 23554227 (Version 1)
Quarter: 2024Q1

REPORT INFORMATION
  Report Type: Spontaneous
  Country: US (occurrence: None)
  Receive Date: 20240222
  Receipt Date: 20240222
  Transmission Date: 20240410
  Serious: Yes (Other)
  Sender: FDA-Public Use
  Company Number: None

PATIENT
  Age: 21 Year
  Sex: Male

DRUGS (1)
  1. HADLIMA [Suspect]
     Active Substance: ADALIMUMAB-BWWD
     Indication: Colitis ulcerative
     Dosage: FREQUENCY : ONCE;?

REACTIONS (3)
  - Influenza like illness [None]
  - Abdominal pain [None]
  - Rash [None]

NARRATIVE: CASE EVENT DATE: 20240221
